FAERS Safety Report 13050543 (Version 2)
Quarter: 2016Q4

REPORT INFORMATION
  Report Type: Report from Study
  Country: US (occurrence: US)
  Receive Date: 20161221
  Receipt Date: 20161227
  Transmission Date: 20170207
  Serious: Yes (Hospitalization)
  Sender: FDA-Public Use
  Company Number: US-SA-2016SA059480

PATIENT
  Age: 49 Year
  Sex: Female

DRUGS (13)
  1. AMPYRA [Concomitant]
     Active Substance: DALFAMPRIDINE
     Indication: GAIT DISTURBANCE
  2. CIPROFLOXACIN. [Concomitant]
     Active Substance: CIPROFLOXACIN
  3. SPIRONOLACTONE. [Concomitant]
     Active Substance: SPIRONOLACTONE
     Indication: ACNE
     Dates: start: 20160223
  4. LEMTRADA [Suspect]
     Active Substance: ALEMTUZUMAB
     Indication: MULTIPLE SCLEROSIS
     Route: 041
     Dates: start: 20151207, end: 20151211
  5. TRAZODONE [Concomitant]
     Active Substance: TRAZODONE HYDROCHLORIDE
     Indication: SLEEP DISORDER
  6. OXYBUTYNIN [Concomitant]
     Active Substance: OXYBUTYNIN
     Indication: URINARY TRACT DISORDER
  7. VITAMIN D/CALCIUM [Concomitant]
     Indication: BONE DISORDER
     Dosage: 600-800
  8. ESCITALOPRAM [Concomitant]
     Active Substance: ESCITALOPRAM OXALATE
     Indication: DEPRESSION
  9. VITAMIN C [Concomitant]
     Active Substance: ASCORBIC ACID
  10. AMPHETAMINE/DEXTROAMPHETAMINE [Concomitant]
     Indication: FATIGUE
  11. TIZANIDINE. [Concomitant]
     Active Substance: TIZANIDINE
     Indication: MUSCLE SPASMS
  12. METHENAMINE [Concomitant]
     Active Substance: METHENAMINE
  13. RALOXIFENE. [Concomitant]
     Active Substance: RALOXIFENE
     Indication: OSTEOPENIA

REACTIONS (13)
  - Therapeutic response decreased [Unknown]
  - Pancytopenia [Unknown]
  - Urine odour abnormal [Not Recovered/Not Resolved]
  - Red blood cell count decreased [Unknown]
  - CD4 lymphocyte percentage decreased [Unknown]
  - Blood count abnormal [Unknown]
  - Epistaxis [Unknown]
  - Gingival bleeding [Unknown]
  - Urinary tract infection [Not Recovered/Not Resolved]
  - Urine output decreased [Not Recovered/Not Resolved]
  - Platelet count decreased [Unknown]
  - CD4 lymphocytes decreased [Unknown]
  - Lymphocyte count decreased [Unknown]

NARRATIVE: CASE EVENT DATE: 2016
